FAERS Safety Report 9907299 (Version 1)
Quarter: 2014Q1

REPORT INFORMATION
  Report Type: Spontaneous
  Country: IT (occurrence: IT)
  Receive Date: 20140218
  Receipt Date: 20140218
  Transmission Date: 20141002
  Serious: Yes (Hospitalization)
  Sender: FDA-Public Use
  Company Number: IT-MYLANLABS-2014S1002759

PATIENT
  Age: 84 Year
  Sex: Female

DRUGS (4)
  1. QUETIAPINE [Suspect]
     Indication: PSYCHOTIC DISORDER
     Dosage: 100 MG DAILY
     Route: 048
     Dates: end: 20140121
  2. DIAZEPAM [Suspect]
     Indication: PSYCHOTIC DISORDER
     Dosage: 20 GTT AS NECESSARY
     Route: 048
     Dates: end: 20140121
  3. BIPERIDEN HYDROCHLORIDE [Suspect]
     Indication: PSYCHOTIC DISORDER
     Dosage: 4 MG DAILY
     Dates: end: 20140121
  4. TALOFEN [Suspect]
     Indication: PSYCHOTIC DISORDER
     Dosage: 20 GTT DAILY
     Route: 048
     Dates: end: 20140121

REACTIONS (1)
  - Sopor [Recovered/Resolved]
